FAERS Safety Report 13781194 (Version 1)
Quarter: 2017Q3

REPORT INFORMATION
  Report Type: Spontaneous
  Country: US (occurrence: US)
  Receive Date: 20170723
  Receipt Date: 20170723
  Transmission Date: 20171127
  Serious: Yes (Disabling)
  Sender: FDA-Public Use
  Company Number: None

PATIENT
  Age: 33 Year
  Sex: Female
  Weight: 76.05 kg

DRUGS (8)
  1. PROBIOTIC [Concomitant]
     Active Substance: PROBIOTICS NOS
  2. ALPRAZOLAM. [Concomitant]
     Active Substance: ALPRAZOLAM
  3. HCG [Suspect]
     Active Substance: GONADOTROPHIN, CHORIONIC
  4. CITALOPRAM [Concomitant]
     Active Substance: CITALOPRAM HYDROBROMIDE
  5. PREDNISONE. [Concomitant]
     Active Substance: PREDNISONE
  6. MELATONIN [Concomitant]
     Active Substance: MELATONIN
  7. DEXTROAMPHET SACCHARAT, AMPHET ASPARTATE, DEXTROAMPHET SULFATE AND AMPHET SULFAT [Concomitant]
     Active Substance: AMPHETAMINE ASPARTATE\AMPHETAMINE SULFATE\DEXTROAMPHETAMINE SACCHARATE\DEXTROAMPHETAMINE SULFATE
  8. HCG ULTRA MAX ORAL DROPS (HOMEOPATHICS) [Suspect]
     Active Substance: HOMEOPATHICS
     Indication: WEIGHT DECREASED
     Dosage: ?          OTHER STRENGTH:GTT;QUANTITY:15 DROP(S);?
     Route: 060
     Dates: start: 20170619, end: 20170627

REACTIONS (9)
  - Weight decreased [None]
  - Blood pressure increased [None]
  - Mood swings [None]
  - Headache [None]
  - Flank pain [None]
  - Anxiety [None]
  - Insomnia [None]
  - Depression [None]
  - Abdominal pain [None]

NARRATIVE: CASE EVENT DATE: 20170627
